FAERS Safety Report 5816038-3 (Version None)
Quarter: 2008Q3

REPORT INFORMATION
  Report Type: 
  Country: None (occurrence: None)
  Receive Date: 20080721
  Receipt Date: 20080710
  Transmission Date: 20090109
  Serious: Yes (Other)
  Sender: FDA-Public Use
  Company Number: FR-ELI_LILLY_AND_COMPANY-FR200806000140

PATIENT
  Age: 64 Year
  Sex: Female
  Weight: 53 kg

DRUGS (7)
  1. FORTEO [Suspect]
     Indication: OSTEOPOROTIC FRACTURE
     Dosage: 20 UG, UNKNOWN
     Route: 058
     Dates: start: 20071219
  2. FORTEO [Suspect]
     Dosage: UNK, UNK
     Route: 065
     Dates: end: 20080418
  3. FLECAINIDE ACETATE [Concomitant]
     Indication: ARRHYTHMIA
     Dosage: UNK, UNKNOWN
     Route: 065
  4. CORGARD [Concomitant]
     Indication: ARRHYTHMIA
     Dosage: UNK, UNKNOWN
     Route: 065
  5. COUMADIN [Concomitant]
     Indication: ARRHYTHMIA
     Dosage: UNK, UNKNOWN
     Route: 065
  6. ESIDRIX [Concomitant]
     Indication: ARRHYTHMIA
     Dosage: UNK,UNK
  7. LIPANOR [Concomitant]
     Indication: ARRHYTHMIA
     Dosage: UNK, UNK

REACTIONS (3)
  - ARRHYTHMIA [None]
  - EXTRASYSTOLES [None]
  - SYNCOPE [None]
